FAERS Safety Report 7373919-X (Version None)
Quarter: 2011Q1

REPORT INFORMATION
  Report Type: 
  Country: None (occurrence: None)
  Receive Date: 20110325
  Receipt Date: 20110322
  Transmission Date: 20110831
  Serious: No
  Sender: FDA-Public Use
  Company Number: US-PFIZER INC-2011063554

PATIENT
  Sex: Female
  Weight: 49.8 kg

DRUGS (2)
  1. ADVIL PM [Suspect]
     Indication: HEADACHE
     Dosage: 2 DF, UNK
     Route: 065
     Dates: start: 20110322
  2. RISPERDAL [Concomitant]
     Indication: DEPRESSION
     Dosage: UNK
     Route: 065

REACTIONS (3)
  - DYSPNOEA [None]
  - NERVOUSNESS [None]
  - DIZZINESS [None]
